FAERS Safety Report 15585683 (Version 1)
Quarter: 2018Q4

REPORT INFORMATION
  Report Type: Spontaneous
  Country: GB (occurrence: FR)
  Receive Date: 20181105
  Receipt Date: 20181105
  Transmission Date: 20190205
  Serious: Yes (Hospitalization)
  Sender: FDA-Public Use
  Company Number: FR-FRESENIUS KABI-FK201811350

PATIENT
  Age: 69 Year
  Sex: Female
  Weight: 91 kg

DRUGS (10)
  1. GENTAMICIN SULFATE. [Suspect]
     Active Substance: GENTAMICIN SULFATE
     Indication: PROPHYLAXIS
     Route: 042
     Dates: start: 20181003, end: 20181003
  2. BOTULINUM TOXIN TYPE A [Suspect]
     Active Substance: BOTULINUM TOXIN TYPE A
     Indication: ANAL FISSURE
     Route: 030
     Dates: start: 20181003, end: 20181003
  3. PROPOFOL. [Suspect]
     Active Substance: PROPOFOL
     Indication: ANAESTHESIA
     Route: 042
     Dates: start: 20181003, end: 20181003
  4. CLINDAMYCIN KABI (NOT SPECIFIED) [Suspect]
     Active Substance: CLINDAMYCIN PHOSPHATE
     Indication: PROPHYLAXIS
     Route: 042
     Dates: start: 20181003, end: 20181003
  5. DEXAMETHASONE SODIUM PHOSPHATE. [Suspect]
     Active Substance: DEXAMETHASONE SODIUM PHOSPHATE
     Indication: ANAESTHESIA
     Route: 042
     Dates: start: 20181003, end: 20181003
  6. SUFENTANIL [Suspect]
     Active Substance: SUFENTANIL
     Indication: ANAESTHESIA
     Route: 042
     Dates: start: 20181003, end: 20181003
  7. NEFOPAM HYDROCHLORIDE [Suspect]
     Active Substance: NEFOPAM HYDROCHLORIDE
     Indication: PAIN PROPHYLAXIS
     Route: 042
     Dates: start: 20181003, end: 20181003
  8. ROPIVACAINE HYDROCHLORIDE. [Suspect]
     Active Substance: ROPIVACAINE HYDROCHLORIDE
     Indication: ANAESTHESIA
     Route: 042
     Dates: start: 20181003, end: 20181003
  9. PARACETAMOL [Suspect]
     Active Substance: ACETAMINOPHEN
     Indication: PAIN PROPHYLAXIS
     Route: 041
     Dates: start: 20181003, end: 20181003
  10. ROCURONIUM BROMIDE. [Suspect]
     Active Substance: ROCURONIUM BROMIDE
     Indication: ANAESTHESIA
     Route: 042
     Dates: start: 20181003, end: 20181003

REACTIONS (1)
  - Anaphylactic reaction [Recovered/Resolved]

NARRATIVE: CASE EVENT DATE: 20181003
